FAERS Safety Report 18485362 (Version 1)
Quarter: 2020Q4

REPORT INFORMATION
  Report Type: Other
  Country: NL (occurrence: NL)
  Receive Date: 20201110
  Receipt Date: 20201110
  Transmission Date: 20210114
  Serious: Yes (Life-Threatening)
  Sender: FDA-Public Use
  Company Number: NL-GLENMARK PHARMACEUTICALS-2020GMK050355

PATIENT

DRUGS (10)
  1. TOPIRAMATE. [Suspect]
     Active Substance: TOPIRAMATE
     Indication: BIPOLAR DISORDER
     Dosage: 300 MILLIGRAM BID (2X PER DAY 3 TABLETS)
     Route: 065
     Dates: start: 1900
  2. SALBUTAMOL [Concomitant]
     Active Substance: ALBUTEROL
     Indication: PRODUCT USED FOR UNKNOWN INDICATION
     Dosage: 100UG/DO (100 ?G/DOSIS)
     Route: 065
  3. TEMAZEPAM. [Concomitant]
     Active Substance: TEMAZEPAM
     Indication: PRODUCT USED FOR UNKNOWN INDICATION
     Dosage: 10 MILLIGRAM
     Route: 065
  4. BUPRENORPHINE. [Concomitant]
     Active Substance: BUPRENORPHINE
     Indication: PRODUCT USED FOR UNKNOWN INDICATION
     Dosage: UNK PLEISTER 15UG/UUR (BUPRENORFINE)
     Route: 065
  5. TOPIRAMATE. [Interacting]
     Active Substance: TOPIRAMATE
     Indication: SCHIZOAFFECTIVE DISORDER
  6. CLONIDINE. [Interacting]
     Active Substance: CLONIDINE
     Indication: HYPERHIDROSIS
     Dosage: 0.05 MILLIGRAM, BID
     Route: 065
     Dates: start: 1900, end: 20200813
  7. FERROFUMARAAT [Concomitant]
     Active Substance: FERROUS FUMARATE
     Indication: PRODUCT USED FOR UNKNOWN INDICATION
     Dosage: 200 MILLIGRAM
     Route: 065
  8. QUETIAPINE. [Concomitant]
     Active Substance: QUETIAPINE
     Indication: PRODUCT USED FOR UNKNOWN INDICATION
     Dosage: 200 MILLIGRAM
     Route: 065
  9. CLONIDINE. [Interacting]
     Active Substance: CLONIDINE
     Indication: HYPERHIDROSIS
  10. OMEPRAZOLE. [Concomitant]
     Active Substance: OMEPRAZOLE
     Indication: PRODUCT USED FOR UNKNOWN INDICATION
     Dosage: 20 MILLIGRAM (MSR CAPSULE)
     Route: 065

REACTIONS (2)
  - Potentiating drug interaction [Unknown]
  - Hyperthermia [Recovering/Resolving]

NARRATIVE: CASE EVENT DATE: 20200813
